FAERS Safety Report 8031416-2 (Version None)
Quarter: 2012Q1

REPORT INFORMATION
  Report Type: 
  Country: None (occurrence: None)
  Receive Date: 20120109
  Receipt Date: 20120103
  Transmission Date: 20120608
  Serious: Yes (Hospitalization, Other)
  Sender: FDA-Public Use
  Company Number: US-BAYER-2011-100351

PATIENT
  Age: 29 Year
  Sex: Female
  Weight: 83.9 kg

DRUGS (4)
  1. ETHINYLESTRAD W/FERROUS FUM/NORETHISTER ACET [Concomitant]
  2. BENTYL [Concomitant]
  3. YAZ [Suspect]
     Indication: CONTRACEPTION
     Dosage: UNK
     Route: 048
     Dates: start: 20080201, end: 20081001
  4. PROTONIX [Concomitant]

REACTIONS (13)
  - GASTRODUODENITIS [None]
  - INJURY [None]
  - PAIN [None]
  - GASTRIC ULCER [None]
  - PANCREATITIS [None]
  - NAUSEA [None]
  - COLD SWEAT [None]
  - GASTROOESOPHAGEAL REFLUX DISEASE [None]
  - CHOLECYSTECTOMY [None]
  - HEADACHE [None]
  - CHOLELITHIASIS [None]
  - HIATUS HERNIA [None]
  - GASTRITIS [None]
